FAERS Safety Report 6344743-1 (Version None)
Quarter: 2009Q3

REPORT INFORMATION
  Report Type: 
  Country: None (occurrence: None)
  Receive Date: 20090904
  Receipt Date: 20090820
  Transmission Date: 20100115
  Serious: Yes (Hospitalization)
  Sender: FDA-Public Use
  Company Number: 2008AL005549

PATIENT
  Age: 66 Year
  Sex: Male
  Weight: 81.1939 kg

DRUGS (39)
  1. DIGOXIN [Suspect]
     Indication: ATRIAL FIBRILLATION
     Dosage: 0.25MG, QHS, PO
     Route: 048
     Dates: start: 20071201
  2. METOPROLOL TARTRATE [Concomitant]
  3. RAMIRIL [Concomitant]
  4. CRESTOR [Concomitant]
  5. FLOMAX [Concomitant]
  6. BISOPROLOL [Concomitant]
  7. COLCHICINE [Concomitant]
  8. MEPHYTON [Concomitant]
  9. WARFARIN SODIUM [Concomitant]
  10. PROPAFENONE HCL [Concomitant]
  11. DESONIDE [Concomitant]
  12. ALBUTEROL [Concomitant]
  13. CLARITHROMYCIN [Concomitant]
  14. ROSUVASTATIN CALCIUM [Concomitant]
  15. FINASTERIDE [Concomitant]
  16. CEPHALEXIN [Concomitant]
  17. TAMSULOSIN HCL [Concomitant]
  18. DILTIAZEM [Concomitant]
  19. FLOMAX [Concomitant]
  20. FLUTICASONE [Concomitant]
  21. HYTRIN [Concomitant]
  22. HYDROCODONE BITARTRATE AND ACETAMINOPHEN [Concomitant]
  23. ZOCOR [Concomitant]
  24. LISINOPRIL [Concomitant]
  25. NORVASC [Concomitant]
  26. TUSSIONEX [Concomitant]
  27. DYNACIRC CR [Concomitant]
  28. AMOXICILLIN [Concomitant]
  29. TERAZOSIN HCL [Concomitant]
  30. AZITHROMYCIN [Concomitant]
  31. KETEK [Concomitant]
  32. SKELAXIN [Concomitant]
  33. SILVER SULFADIAZINE [Concomitant]
  34. ALTACE [Concomitant]
  35. VERDESO [Concomitant]
  36. SIMVASTATIN [Concomitant]
  37. DESOXIMETASONE [Concomitant]
  38. PROPAFENONE HCL [Concomitant]
  39. MEPHYTON [Concomitant]

REACTIONS (14)
  - ATRIAL FIBRILLATION [None]
  - BUNDLE BRANCH BLOCK RIGHT [None]
  - CEREBROVASCULAR ACCIDENT [None]
  - CONTUSION [None]
  - DELAYED SLEEP PHASE [None]
  - DIZZINESS [None]
  - HEART RATE INCREASED [None]
  - HYPERLIPIDAEMIA [None]
  - PALPITATIONS [None]
  - SICK SINUS SYNDROME [None]
  - SLEEP APNOEA SYNDROME [None]
  - VISUAL FIELD DEFECT [None]
  - VISUAL IMPAIRMENT [None]
  - WEIGHT DECREASED [None]
